FAERS Safety Report 25633631 (Version 1)
Quarter: 2025Q3

REPORT INFORMATION
  Report Type: Spontaneous
  Country: CN (occurrence: CN)
  Receive Date: 20250801
  Receipt Date: 20250801
  Transmission Date: 20251021
  Serious: Yes (Hospitalization)
  Sender: NOVARTIS
  Company Number: CN-002147023-NVSC2025CN118399

PATIENT
  Age: 52 Year
  Sex: Female
  Weight: 50 kg

DRUGS (10)
  1. RIBOCICLIB [Suspect]
     Active Substance: RIBOCICLIB
     Indication: Breast cancer
     Dosage: 400 MG, QD
     Route: 048
     Dates: start: 20250224, end: 20250716
  2. RIBOCICLIB [Suspect]
     Active Substance: RIBOCICLIB
     Indication: Hormone therapy
  3. ANASTROZOLE [Concomitant]
     Active Substance: ANASTROZOLE
     Indication: Breast cancer
     Dosage: 1 MG, QD
     Route: 048
     Dates: start: 20250402, end: 20250722
  4. ANASTROZOLE [Concomitant]
     Active Substance: ANASTROZOLE
     Indication: Adjuvant therapy
  5. Compound glycyrrhizin [Concomitant]
     Indication: Antiinflammatory therapy
     Route: 048
  6. Compound glycyrrhizin [Concomitant]
     Indication: Immunisation
  7. EBASTINE [Concomitant]
     Active Substance: EBASTINE
     Indication: Antiallergic therapy
     Route: 065
  8. Compound rutin [Concomitant]
     Indication: Vascular fragility
     Route: 065
  9. SODIUM THIOSULFATE [Concomitant]
     Active Substance: SODIUM THIOSULFATE
     Indication: Antiallergic therapy
     Route: 065
  10. HERBALS [Concomitant]
     Active Substance: HERBALS
     Indication: Antiinflammatory therapy
     Dosage: 20 MG, TID
     Route: 048

REACTIONS (8)
  - Drug eruption [Recovering/Resolving]
  - Oedema peripheral [Recovering/Resolving]
  - Rash [Not Recovered/Not Resolved]
  - Ecchymosis [Unknown]
  - Pruritus [Recovering/Resolving]
  - Pain [Recovering/Resolving]
  - Rash macular [Unknown]
  - Skin exfoliation [Unknown]

NARRATIVE: CASE EVENT DATE: 20250615
